FAERS Safety Report 14535537 (Version 1)
Quarter: 2018Q1

REPORT INFORMATION
  Report Type: Spontaneous
  Country: US (occurrence: US)
  Receive Date: 20180214
  Receipt Date: 20180214
  Transmission Date: 20180509
  Serious: Yes (Hospitalization)
  Sender: FDA-Public Use
  Company Number: None

PATIENT
  Age: 4 Year
  Sex: Male

DRUGS (11)
  1. TRACLEER [Concomitant]
     Active Substance: BOSENTAN
  2. TRIAMCINOLON [Concomitant]
  3. REVATIO [Suspect]
     Active Substance: SILDENAFIL CITRATE
     Indication: PULMONARY ARTERIAL HYPERTENSION
     Route: 048
     Dates: start: 20180112
  4. FUROSEMIDE. [Concomitant]
     Active Substance: FUROSEMIDE
  5. QVAR [Concomitant]
     Active Substance: BECLOMETHASONE DIPROPIONATE
  6. DIURIL [Concomitant]
     Active Substance: CHLOROTHIAZIDE
  7. PREDNISOLONE. [Concomitant]
     Active Substance: PREDNISOLONE
  8. HYOSYNE [Concomitant]
     Active Substance: HYOSCYAMINE SULFATE
  9. LEVALBUTEROL ER [Concomitant]
  10. AMOXICILLIN. [Concomitant]
     Active Substance: AMOXICILLIN
  11. POT CHLORIDE [Concomitant]
     Active Substance: POTASSIUM CHLORIDE

REACTIONS (1)
  - Respiratory syncytial virus infection [None]

NARRATIVE: CASE EVENT DATE: 20180118
